FAERS Safety Report 8549829-9 (Version None)
Quarter: 2012Q3

REPORT INFORMATION
  Report Type: 
  Country: None (occurrence: None)
  Receive Date: 20120730
  Receipt Date: 20120721
  Transmission Date: 20120928
  Serious: Yes (Other)
  Sender: FDA-Public Use
  Company Number: BR-ASTRAZENECA-2012SE52281

PATIENT
  Age: 32 Year
  Sex: Male
  Weight: 101 kg

DRUGS (1)
  1. ATACAND [Suspect]
     Indication: HYPERTENSION
     Route: 048
     Dates: start: 20110101, end: 20120201

REACTIONS (2)
  - HYPERTENSION [None]
  - DRUG INEFFECTIVE [None]
